FAERS Safety Report 16986681 (Version 1)
Quarter: 2019Q4

REPORT INFORMATION
  Report Type: Spontaneous
  Country: US (occurrence: US)
  Receive Date: 20191029
  Receipt Date: 20191029
  Transmission Date: 20200122
  Serious: Yes (Other)
  Sender: FDA-Public Use
  Company Number: None

PATIENT
  Age: 27 Year
  Sex: Female
  Weight: 63.9 kg

DRUGS (1)
  1. ALPRAZOLAM 0.5 MG [Suspect]
     Active Substance: ALPRAZOLAM

REACTIONS (1)
  - Hallucination [None]

NARRATIVE: CASE EVENT DATE: 20191026
